FAERS Safety Report 25211113 (Version 2)
Quarter: 2025Q2

REPORT INFORMATION
  Report Type: Spontaneous
  Country: US (occurrence: US)
  Receive Date: 20250417
  Receipt Date: 20250509
  Transmission Date: 20250716
  Serious: Yes (Other)
  Sender: GLAUKOS
  Company Number: US-GLK-000631

PATIENT
  Sex: Female

DRUGS (1)
  1. IDOSE TR [Suspect]
     Active Substance: TRAVOPROST
     Indication: Product used for unknown indication
     Route: 047
     Dates: start: 20241120, end: 20241120

REACTIONS (4)
  - Disease progression [Recovering/Resolving]
  - Intraocular pressure increased [Recovering/Resolving]
  - Drug ineffective [Unknown]
  - Medical device removal [Recovered/Resolved]
